FAERS Safety Report 23646654 (Version 1)
Quarter: 2024Q1

REPORT INFORMATION
  Report Type: Spontaneous
  Country: AR (occurrence: AR)
  Receive Date: 20240319
  Receipt Date: 20240319
  Transmission Date: 20240410
  Serious: Yes (Other)
  Sender: FDA-Public Use
  Company Number: AR-ABBVIE-5683082

PATIENT
  Age: 29 Year
  Sex: Female

DRUGS (3)
  1. SKYRIZI [Suspect]
     Active Substance: RISANKIZUMAB-RZAA
     Indication: Psoriatic arthropathy
     Dosage: START DATE TEXT: UNKNOWN WEEK 0
     Route: 058
  2. SKYRIZI [Suspect]
     Active Substance: RISANKIZUMAB-RZAA
     Dosage: START DATE TEXT: UNKNOWN WEEK 4
     Route: 058
  3. ISONIAZID [Concomitant]
     Active Substance: ISONIAZID
     Indication: Prophylaxis

REACTIONS (2)
  - Hepatitis toxic [Unknown]
  - Transaminases increased [Unknown]
